FAERS Safety Report 4888201-X (Version None)
Quarter: 2006Q1

REPORT INFORMATION
  Report Type: 
  Country: None (occurrence: None)
  Receive Date: 20060123
  Receipt Date: 20050706
  Transmission Date: 20060701
  Serious: Yes (Death, Life-Threatening, Hospitalization)
  Sender: FDA-Public Use
  Company Number: ZA-BRISTOL-MYERS SQUIBB COMPANY-13026596

PATIENT
  Age: 62 Year
  Sex: Female

DRUGS (12)
  1. ABATACEPT [Suspect]
     Indication: RHEUMATOID ARTHRITIS
     Route: 042
     Dates: start: 20040521
  2. METHOTREXATE [Suspect]
     Indication: RHEUMATOID ARTHRITIS
     Route: 048
     Dates: start: 20030109
  3. RISEDRONATE SODIUM [Concomitant]
     Route: 048
     Dates: start: 20030109
  4. PREDNISONE TAB [Concomitant]
     Route: 048
     Dates: start: 20030210
  5. PARACETAMOL [Concomitant]
     Route: 048
     Dates: start: 20030109
  6. FOLIC ACID [Concomitant]
     Route: 048
     Dates: start: 20030109
  7. CALTRATE VITAMINE D3 [Concomitant]
     Route: 048
     Dates: start: 20030109
  8. TEMAZEPAM [Concomitant]
     Route: 048
     Dates: start: 20041105
  9. MELOXICAM [Concomitant]
     Route: 048
     Dates: start: 20050518
  10. PREGAMAL [Concomitant]
     Route: 048
     Dates: start: 20040903
  11. DOXYFENE [Concomitant]
     Route: 048
     Dates: start: 20031031
  12. DEXTROPROPO+APAP+PEMOLINE+GLUTAMINE [Concomitant]
     Route: 048
     Dates: start: 20030617

REACTIONS (6)
  - HYPOVOLAEMIC SHOCK [None]
  - PNEUMONIA [None]
  - RENAL FAILURE ACUTE [None]
  - RETROPERITONEAL HAEMORRHAGE [None]
  - SEPTIC SHOCK [None]
  - SINUSITIS [None]
